FAERS Safety Report 13541345 (Version 6)
Quarter: 2020Q4

REPORT INFORMATION
  Report Type: Report from Study
  Country: US (occurrence: US)
  Receive Date: 20170512
  Receipt Date: 20201201
  Transmission Date: 20210113
  Serious: Yes (Hospitalization)
  Sender: FDA-Public Use
  Company Number: US-SA-2016SA089656

PATIENT

DRUGS (3)
  1. INSULIN GLULISINE [Suspect]
     Active Substance: INSULIN GLULISINE
     Indication: TYPE 2 DIABETES MELLITUS
     Dosage: UNK UNK, Q4H
  2. LANTUS [Concomitant]
     Active Substance: INSULIN GLARGINE
     Dosage: UNK
     Route: 065
  3. INSULIN GLULISINE [Suspect]
     Active Substance: INSULIN GLULISINE
     Dosage: Q4H (100-120 UNITS A DAY)

REACTIONS (9)
  - Foot fracture [Unknown]
  - Blood glucose abnormal [Unknown]
  - Malaise [Unknown]
  - Blood glucose increased [Unknown]
  - Gait disturbance [Unknown]
  - Visual impairment [Unknown]
  - Product packaging quantity issue [Unknown]
  - Localised infection [Unknown]
  - Product dose omission issue [Unknown]

NARRATIVE: CASE EVENT DATE: 20160615
